FAERS Safety Report 4818368-0 (Version None)
Quarter: 2005Q4

REPORT INFORMATION
  Report Type: 
  Country: None (occurrence: None)
  Receive Date: 20051031
  Receipt Date: 20051014
  Transmission Date: 20060501
  Serious: Yes (Hospitalization)
  Sender: FDA-Public Use
  Company Number: FR-2005-019543

PATIENT
  Age: 30 Year
  Sex: Female

DRUGS (4)
  1. ULTRAVIST 370 [Suspect]
     Indication: COMPUTERISED TOMOGRAM ABDOMEN
     Dosage: INTRAVENOUS
     Route: 042
     Dates: start: 20050902, end: 20050902
  2. SPASFON (TRIMETHYPHLOROGLUCINOL, PHLOROGLUCINOL) SOLUTION [Suspect]
     Dosage: 1 DF, 1X/DAY, INTRAVENOUS
     Route: 042
     Dates: start: 20050901, end: 20050903
  3. OMEPRAZOLE [Suspect]
     Dosage: 1 DF, 4X/DAY , INTRAVENOUS
     Route: 042
     Dates: start: 20050901, end: 20050904
  4. CLIMENE 21 (CYPROTERONE ACETATE, ESTRADIOL VALERATE) TABLET [Concomitant]

REACTIONS (2)
  - ACUTE GENERALISED EXANTHEMATOUS PUSTULOSIS [None]
  - PRURITUS [None]
